FAERS Safety Report 9886945 (Version 1)
Quarter: 2014Q1

REPORT INFORMATION
  Report Type: Spontaneous
  Country: US (occurrence: US)
  Receive Date: 20140211
  Receipt Date: 20140211
  Transmission Date: 20141002
  Serious: No
  Sender: FDA-Public Use
  Company Number: US-009507513-1402USA001632

PATIENT
  Age: 58 Year
  Sex: Female

DRUGS (3)
  1. DULERA [Suspect]
     Indication: BRONCHITIS
     Dosage: 200/ 5 MCG,2 DF, BID
     Route: 055
     Dates: start: 201311
  2. Z-PAK [Concomitant]
  3. LEVAQUIN [Concomitant]

REACTIONS (3)
  - Cough [Not Recovered/Not Resolved]
  - Product quality issue [Unknown]
  - Drug ineffective [Not Recovered/Not Resolved]
